FAERS Safety Report 5052137-4 (Version None)
Quarter: 2006Q3

REPORT INFORMATION
  Report Type: 
  Country: None (occurrence: None)
  Receive Date: 20060712
  Receipt Date: 20060712
  Transmission Date: 20061208
  Serious: No
  Sender: FDA-Public Use
  Company Number: None

PATIENT
  Age: 66 Year
  Sex: Male

DRUGS (2)
  1. PROMETHAZINE [Suspect]
     Indication: NAUSEA
     Dosage: 12.5 MG IV X 1
     Route: 042
     Dates: start: 20060622
  2. PROMETHAZINE [Suspect]
     Indication: VOMITING
     Dosage: 12.5 MG IV X 1
     Route: 042
     Dates: start: 20060622

REACTIONS (3)
  - CEREBROVASCULAR ACCIDENT [None]
  - DYSARTHRIA [None]
  - MENTAL STATUS CHANGES [None]
